FAERS Safety Report 5287263-8 (Version None)
Quarter: 2007Q2

REPORT INFORMATION
  Report Type: 
  Country: None (occurrence: None)
  Receive Date: 20070404
  Receipt Date: 20070323
  Transmission Date: 20071010
  Serious: Yes (Other)
  Sender: FDA-Public Use
  Company Number: FR-PFIZER INC-2007024615

PATIENT
  Sex: Female

DRUGS (1)
  1. NEURONTIN [Suspect]

REACTIONS (2)
  - OPTIC NERVE DISORDER [None]
  - VISUAL FIELD DEFECT [None]
